FAERS Safety Report 21010951 (Version 1)
Quarter: 2022Q2

REPORT INFORMATION
  Report Type: Spontaneous
  Country: US (occurrence: US)
  Receive Date: 20220627
  Receipt Date: 20220627
  Transmission Date: 20220720
  Serious: Yes (Other)
  Sender: FDA-Public Use
  Company Number: US-PFIZER INC-PV202200008774

PATIENT
  Age: 76 Year
  Sex: Male

DRUGS (1)
  1. VYNDAMAX [Suspect]
     Active Substance: TAFAMIDIS
     Dosage: 61 MG

REACTIONS (12)
  - Cardiac resynchronisation therapy [Unknown]
  - Renal impairment [Unknown]
  - Oedema peripheral [Unknown]
  - Pain [Unknown]
  - Decreased activity [Unknown]
  - Skin tightness [Unknown]
  - Skin induration [Unknown]
  - Dyspnoea [Unknown]
  - Weight increased [Unknown]
  - Scrotal oedema [Unknown]
  - Fatigue [Unknown]
  - Rales [Unknown]

NARRATIVE: CASE EVENT DATE: 20220303
